FAERS Safety Report 20915018 (Version 1)
Quarter: 2022Q2

REPORT INFORMATION
  Report Type: Spontaneous
  Country: US (occurrence: US)
  Receive Date: 20220604
  Receipt Date: 20220604
  Transmission Date: 20220721
  Serious: No
  Sender: FDA-Public Use
  Company Number: US-SANOFI-01115263

PATIENT
  Sex: Male

DRUGS (2)
  1. LANTUS SOLOSTAR [Suspect]
     Active Substance: INSULIN GLARGINE
     Dosage: UNK
     Dates: start: 2021
  2. VALPROIC ACID [Concomitant]
     Active Substance: VALPROIC ACID
     Indication: Brain oedema
     Dosage: UNK

REACTIONS (6)
  - Migraine [Unknown]
  - Road traffic accident [Unknown]
  - Memory impairment [Unknown]
  - Sleep disorder [Unknown]
  - Blood glucose decreased [Unknown]
  - Intentional product use issue [Unknown]
